FAERS Safety Report 8494959-3 (Version None)
Quarter: 2012Q3

REPORT INFORMATION
  Report Type: 
  Country: None (occurrence: None)
  Receive Date: 20120709
  Receipt Date: 20120628
  Transmission Date: 20120928
  Serious: Yes (Death)
  Sender: FDA-Public Use
  Company Number: ZA-BRISTOL-MYERS SQUIBB COMPANY-16717944

PATIENT
  Age: 37 Year
  Sex: Male
  Weight: 63 kg

DRUGS (8)
  1. PYRIDOXINE [Concomitant]
     Dates: start: 20120425
  2. MULTI-VITAMINS [Concomitant]
     Dosage: 1 DF= 1 TABLET DAILY
     Dates: start: 20120425
  3. ACYCLOVIR [Concomitant]
     Dosage: 10MAY12 TO 16MAY12
     Route: 048
     Dates: start: 20120424
  4. EFAVIRENZ [Suspect]
     Indication: HIV INFECTION
     Dosage: LAST DOSE ON 15JUN12
     Route: 048
     Dates: start: 20120425
  5. COTRIM [Concomitant]
     Dosage: 1 DF= 2 TABLETS DAILY
     Dates: start: 20120425
  6. ACETAMINOPHEN [Concomitant]
     Route: 048
     Dates: start: 20120424, end: 20120430
  7. TRUVADA [Suspect]
     Indication: HIV INFECTION
     Dosage: LAST DOSE ON 15JUN12
     Route: 048
     Dates: start: 20120425
  8. ISONIAZID [Suspect]
     Indication: HIV INFECTION
     Dosage: LAST DOSE ON 15JUN12
     Route: 048
     Dates: start: 20120425

REACTIONS (7)
  - DIZZINESS [None]
  - ROAD TRAFFIC ACCIDENT [None]
  - CRANIOCEREBRAL INJURY [None]
  - DISTURBANCE IN ATTENTION [None]
  - HEAD INJURY [None]
  - EAR HAEMORRHAGE [None]
  - EPISTAXIS [None]
